FAERS Safety Report 7954618-X (Version None)
Quarter: 2011Q4

REPORT INFORMATION
  Report Type: 
  Country: None (occurrence: None)
  Receive Date: 20111202
  Receipt Date: 20111128
  Transmission Date: 20120403
  Serious: Yes (Death, Hospitalization)
  Sender: FDA-Public Use
  Company Number: PHEH2011US010047

PATIENT
  Sex: Male

DRUGS (2)
  1. RADIATION [Concomitant]
     Dosage: UNK UKN, UNK
     Route: 065
  2. SANDOSTATIN LAR [Suspect]
     Dosage: 30 MG, UNK
     Route: 065
     Dates: start: 20110516

REACTIONS (8)
  - ENDOCARDITIS [None]
  - HEPATIC NECROSIS [None]
  - SUDDEN DEATH [None]
  - PULMONARY MASS [None]
  - BACTERAEMIA [None]
  - HEPATIC MASS [None]
  - CIRCULATORY COLLAPSE [None]
  - HAEMOPTYSIS [None]
